FAERS Safety Report 5462054-3 (Version None)
Quarter: 2007Q3

REPORT INFORMATION
  Report Type: 
  Country: None (occurrence: None)
  Receive Date: 20070920
  Receipt Date: 20070419
  Transmission Date: 20080115
  Serious: No
  Sender: FDA-Public Use
  Company Number: A0647788A

PATIENT
  Age: 38 Year
  Sex: Female

DRUGS (1)
  1. ABREVA [Suspect]
     Dates: end: 20070415

REACTIONS (2)
  - APPLICATION SITE SWELLING [None]
  - ORAL HERPES [None]
